FAERS Safety Report 11859361 (Version 1)
Quarter: 2015Q4

REPORT INFORMATION
  Report Type: Spontaneous
  Country: US (occurrence: US)
  Receive Date: 20151221
  Receipt Date: 20151221
  Transmission Date: 20160305
  Serious: No
  Sender: FDA-Public Use
  Company Number: GXBR2015US002511

PATIENT
  Sex: Male

DRUGS (1)
  1. AMOXICILLIN CAPSULES, USP [Suspect]
     Active Substance: AMOXICILLIN
     Indication: INFECTION PROPHYLAXIS
     Dosage: 500 MG, UNK
     Route: 048
     Dates: start: 20151105

REACTIONS (1)
  - Expired product administered [Unknown]

NARRATIVE: CASE EVENT DATE: 20151105
